FAERS Safety Report 11194056 (Version 5)
Quarter: 2017Q4

REPORT INFORMATION
  Report Type: Spontaneous
  Country: US (occurrence: US)
  Receive Date: 20150616
  Receipt Date: 20171027
  Transmission Date: 20180320
  Serious: Yes (Hospitalization)
  Sender: FDA-Public Use
  Company Number: US-DSJP-DSU-2015-104073

PATIENT

DRUGS (6)
  1. BENICAR [Suspect]
     Active Substance: OLMESARTAN MEDOXOMIL
     Dosage: 40 MG, UNK
     Dates: start: 2007, end: 20130314
  2. BENICAR HCT [Suspect]
     Active Substance: HYDROCHLOROTHIAZIDE\OLMESARTAN MEDOXOMIL
     Indication: HYPERTENSION
     Dosage: 40/12.5MG DAILY
     Dates: start: 2007, end: 20130314
  3. ASPIRIN                            /00002701/ [Concomitant]
     Active Substance: ASPIRIN
     Indication: PRODUCT USED FOR UNKNOWN INDICATION
     Dosage: 81 MG, QD
  4. BENICAR [Suspect]
     Active Substance: OLMESARTAN MEDOXOMIL
     Indication: HYPERTENSION
     Dosage: UNK
     Dates: start: 2008
  5. BENICAR [Suspect]
     Active Substance: OLMESARTAN MEDOXOMIL
     Dosage: 5 MG, BID
  6. CRESTOR [Concomitant]
     Active Substance: ROSUVASTATIN CALCIUM
     Indication: PRODUCT USED FOR UNKNOWN INDICATION
     Dosage: 10 MG, QD
     Dates: start: 2007

REACTIONS (15)
  - Cholecystitis chronic [Recovered/Resolved]
  - Syncope [Unknown]
  - Malabsorption [Unknown]
  - Hiatus hernia [Unknown]
  - Gluten sensitivity [Unknown]
  - Acute kidney injury [Unknown]
  - Diverticulum [Unknown]
  - Haemorrhoids [Not Recovered/Not Resolved]
  - Duodenitis [Unknown]
  - Melaena [Unknown]
  - Gastric ulcer [Unknown]
  - Hypotension [Unknown]
  - Clostridium difficile colitis [Recovered/Resolved]
  - Constipation [Unknown]
  - Emotional distress [Not Recovered/Not Resolved]

NARRATIVE: CASE EVENT DATE: 201005
